FAERS Safety Report 7477987-6 (Version None)
Quarter: 2011Q2

REPORT INFORMATION
  Report Type: 
  Country: None (occurrence: None)
  Receive Date: 20110511
  Receipt Date: 20110511
  Transmission Date: 20111010
  Serious: Yes (Hospitalization)
  Sender: FDA-Public Use
  Company Number: None

PATIENT
  Sex: Male

DRUGS (1)
  1. METFORMIN HCL [Suspect]
     Indication: DIABETES MELLITUS
     Dosage: 2 TABS ONE DOSE PO
     Route: 048
     Dates: start: 20110504, end: 20110504

REACTIONS (7)
  - HEADACHE [None]
  - BODY TEMPERATURE INCREASED [None]
  - BLOOD PRESSURE DECREASED [None]
  - BLOOD GLUCOSE INCREASED [None]
  - TREMOR [None]
  - FATIGUE [None]
  - PAIN [None]
